FAERS Safety Report 11060587 (Version 1)
Quarter: 2015Q2

REPORT INFORMATION
  Report Type: Not Available
  Country: IT (occurrence: IT)
  Receive Date: 20150423
  Receipt Date: 20150423
  Transmission Date: 20150821
  Serious: Yes (Hospitalization)
  Sender: FDA-Public Use
  Company Number: IT-MUNDIPHARMA DS AND PHARMACOVIGILANCE-GBR-2015-0027102

PATIENT
  Age: 82 Year
  Sex: Female

DRUGS (9)
  1. AUGMENTIN [Suspect]
     Active Substance: AMOXICILLIN\CLAVULANATE POTASSIUM
     Indication: DIABETIC FOOT
     Dosage: 875MG/125MG (3 GRAM, DAILY)
     Route: 048
     Dates: start: 20150411, end: 20150412
  2. ATORVASTATIN [Concomitant]
     Active Substance: ATORVASTATIN
     Route: 065
  3. HUMALOG [Concomitant]
     Active Substance: INSULIN LISPRO
     Route: 065
  4. TARGIN COMPRESSA A RILASCIO PROLUNGATO CONTIENE 10MG/5MG [Suspect]
     Active Substance: NALOXONE HYDROCHLORIDE\OXYCODONE HYDROCHLORIDE
     Indication: DIABETIC FOOT
     Dosage: 20/10 MG, DAILY
     Route: 048
     Dates: start: 20150411
  5. BISOPROLOL FUMARATE. [Concomitant]
     Active Substance: BISOPROLOL FUMARATE
     Route: 065
  6. LANSOPRAZOLE. [Concomitant]
     Active Substance: LANSOPRAZOLE
     Route: 065
  7. BRILIQUE [Concomitant]
     Active Substance: TICAGRELOR
     Dosage: 90 MG, UNK
     Route: 065
  8. CARDIOASPIRIN [Concomitant]
     Active Substance: ASPIRIN
     Dosage: 100 MG, UNK
     Route: 065
  9. LASIX [Concomitant]
     Active Substance: FUROSEMIDE
     Dosage: UNK
     Route: 065

REACTIONS (3)
  - Diarrhoea [Recovering/Resolving]
  - Angina pectoris [Recovering/Resolving]
  - Dehydration [Recovering/Resolving]

NARRATIVE: CASE EVENT DATE: 20150412
